FAERS Safety Report 8067584-6 (Version None)
Quarter: 2012Q1

REPORT INFORMATION
  Report Type: 
  Country: None (occurrence: None)
  Receive Date: 20120124
  Receipt Date: 20120116
  Transmission Date: 20120608
  Serious: Yes (Hospitalization)
  Sender: FDA-Public Use
  Company Number: US-ASTRAZENECA-2011SE43106

PATIENT
  Age: 64 Year
  Sex: Female

DRUGS (1)
  1. TOPROL-XL [Suspect]
     Dosage: 1.5 TABLET DAILY
     Route: 048

REACTIONS (5)
  - HYPOKINESIA [None]
  - DRUG INTOLERANCE [None]
  - INCORRECT DOSE ADMINISTERED [None]
  - HYPERTENSION [None]
  - DIARRHOEA [None]
